FAERS Safety Report 8780229 (Version 1)
Quarter: 2012Q4

REPORT INFORMATION
  Report Type: Spontaneous
  Country: BR (occurrence: None)
  Receive Date: 20120829
  Receipt Date: 20120829
  Transmission Date: 20130627
  Serious: Yes (Hospitalization, Other)
  Sender: FDA-Public Use
  Company Number: DSU-2012-05623

PATIENT
  Age: 66 Year
  Sex: Female

DRUGS (5)
  1. OLMETEC HCT (HYDROCHLOROTHIAZIDE, OLMESARTAN MEDOXOMIL) (TABLET) (HYDROCHLOROTHIAZIDE, OLMESARTAN MEDOXOMIL) [Suspect]
     Indication: HYPERTENSION
     Route: 048
     Dates: start: 20110330
  2. NORVASC [Suspect]
     Indication: HYPERTENSION
     Route: 048
     Dates: start: 20110330
  3. ANGIPRESS (ATENOLOL) (25 MILLIGRAM, TABLET) (ATENOLOL) [Concomitant]
  4. RIVOTRIL (CLONAZEPAM) (2 MILLIGRAM) (CLONAZEPAM) [Concomitant]
  5. OROXADIN (CIPROFIBRATE) (TABLET) (CIPROFIBRATE) [Concomitant]

REACTIONS (4)
  - Abdominal pain upper [None]
  - Renal cancer [None]
  - Hypertension [None]
  - Post procedural complication [None]
